FAERS Safety Report 13862366 (Version 2)
Quarter: 2017Q3

REPORT INFORMATION
  Report Type: Spontaneous
  Country: CN (occurrence: CN)
  Receive Date: 20170813
  Receipt Date: 20170919
  Transmission Date: 20171127
  Serious: Yes (Hospitalization)
  Sender: FDA-Public Use
  Company Number: PHHY2017CN118486

PATIENT
  Age: 61 Year
  Sex: Female

DRUGS (2)
  1. ACLASTA [Suspect]
     Active Substance: ZOLEDRONIC ACID
     Indication: OSTEOPOROSIS POSTMENOPAUSAL
     Dosage: 1 DF (5MG/100ML, ONE TIME EVERY YEAR)
     Route: 042
     Dates: start: 20170708
  2. ACLASTA [Suspect]
     Active Substance: ZOLEDRONIC ACID
     Indication: SENILE OSTEOPOROSIS

REACTIONS (9)
  - Eye swelling [Unknown]
  - Ocular hyperaemia [Unknown]
  - Oropharyngeal pain [Unknown]
  - Conjunctivitis [Unknown]
  - Blood phosphorus decreased [Unknown]
  - Pharyngeal oedema [Unknown]
  - Pyrexia [Recovering/Resolving]
  - Pain [Recovering/Resolving]
  - Iritis [Recovering/Resolving]

NARRATIVE: CASE EVENT DATE: 20170711
